FAERS Safety Report 8329692-1 (Version None)
Quarter: 2012Q2

REPORT INFORMATION
  Report Type: 
  Country: None (occurrence: None)
  Receive Date: 20120502
  Receipt Date: 20120427
  Transmission Date: 20120825
  Serious: Yes (Other)
  Sender: FDA-Public Use
  Company Number: US-GLAXOSMITHKLINE-A0975950A

PATIENT
  Age: 60 Year
  Sex: Male
  Weight: 88.9 kg

DRUGS (9)
  1. PAZOPANIB [Suspect]
     Indication: SMALL CELL LUNG CANCER STAGE UNSPECIFIED
     Dosage: 800MG PER DAY
     Route: 048
     Dates: start: 20120111, end: 20120419
  2. MULTI-VITAMIN [Concomitant]
  3. SIMVASTATIN [Concomitant]
  4. LISINOPRIL [Concomitant]
  5. SODIUM CHLORIDE [Concomitant]
  6. ASPIRIN [Concomitant]
  7. LABETALOL HCL [Concomitant]
  8. VITAMIN D [Concomitant]
  9. MAGNESIUM OXIDE [Concomitant]

REACTIONS (3)
  - LIPASE INCREASED [None]
  - SYNCOPE [None]
  - AMYLASE INCREASED [None]
